FAERS Safety Report 4710502-6 (Version None)
Quarter: 2005Q3

REPORT INFORMATION
  Report Type: 
  Country: None (occurrence: None)
  Receive Date: 20050707
  Receipt Date: 20050629
  Transmission Date: 20060218
  Serious: Yes (Death)
  Sender: FDA-Public Use
  Company Number: USA-2005-0020003

PATIENT
  Age: 65 Year
  Sex: Male

DRUGS (1)
  1. MS CONTIN [Suspect]
     Indication: PAIN
     Dosage: 500 MG, BID,

REACTIONS (6)
  - CHRONIC OBSTRUCTIVE PULMONARY DISEASE [None]
  - DIABETIC COMPLICATION [None]
  - DISEASE PROGRESSION [None]
  - EMPHYSEMA [None]
  - PULMONARY OEDEMA [None]
  - SOMNOLENCE [None]
